FAERS Safety Report 5364328-3 (Version None)
Quarter: 2007Q2

REPORT INFORMATION
  Report Type: 
  Country: None (occurrence: None)
  Receive Date: 20070618
  Receipt Date: 20070604
  Transmission Date: 20071010
  Serious: Yes (Other)
  Sender: FDA-Public Use
  Company Number: 2007-01758

PATIENT
  Age: 53 Year
  Sex: Female

DRUGS (5)
  1. VELCADE [Suspect]
     Indication: DRUG USE FOR UNKNOWN INDICATION
     Dosage: 1.30 MG/M2, INTRAVENOUS
     Route: 042
     Dates: start: 20061101
  2. DEXAMETHASONE 0.5MG TAB [Concomitant]
  3. ACYCLOVIR [Concomitant]
  4. BACTRIM [Concomitant]
  5. ZOMETA [Concomitant]

REACTIONS (1)
  - DRUG INEFFECTIVE [None]
